FAERS Safety Report 17730805 (Version 1)
Quarter: 2020Q2

REPORT INFORMATION
  Report Type: Spontaneous
  Country: GB (occurrence: GB)
  Receive Date: 20200430
  Receipt Date: 20200430
  Transmission Date: 20200714
  Serious: Yes (Death, Other)
  Sender: FDA-Public Use
  Company Number: GB-BAUSCH-BL-2020-012092

PATIENT
  Age: 48 Year
  Sex: Female

DRUGS (6)
  1. DEXAMETHASONE. [Suspect]
     Active Substance: DEXAMETHASONE
     Indication: T-CELL PROLYMPHOCYTIC LEUKAEMIA
     Dosage: DAY 1-5 EVERY 4 WEEKS, TOTAL 2 CYCLES
     Route: 065
     Dates: start: 20180324, end: 20180509
  2. MITOXANTRONE [Suspect]
     Active Substance: MITOXANTRONE HYDROCHLORIDE
     Indication: T-CELL PROLYMPHOCYTIC LEUKAEMIA
     Dosage: DAY 1 EVERY 4 WEEKS, TOTAL CYCLE 2
     Route: 065
     Dates: start: 20180324, end: 20180509
  3. PENTOSTATIN. [Suspect]
     Active Substance: PENTOSTATIN
     Indication: T-CELL PROLYMPHOCYTIC LEUKAEMIA
     Dosage: TOTAL 6 CYCLES
     Route: 065
     Dates: start: 20171124, end: 20180216
  4. ALEMTUZUMAB [Suspect]
     Active Substance: ALEMTUZUMAB
     Indication: T-CELL PROLYMPHOCYTIC LEUKAEMIA
     Dosage: TOTAL 11 CYCLES
     Route: 042
     Dates: start: 20170726, end: 20171010
  5. ALEMTUZUMAB [Suspect]
     Active Substance: ALEMTUZUMAB
     Dosage: TOTAL CYCLE 5
     Route: 042
     Dates: start: 20171011, end: 20171117
  6. FLUDARABINE [Suspect]
     Active Substance: FLUDARABINE PHOSPHATE
     Indication: T-CELL PROLYMPHOCYTIC LEUKAEMIA
     Dosage: DAY 1-3 EVERY 4 WEEKS, TOTAL 2 CYCLES
     Route: 065
     Dates: start: 20180324, end: 20180509

REACTIONS (2)
  - Febrile neutropenia [Unknown]
  - Therapy non-responder [Unknown]

NARRATIVE: CASE EVENT DATE: 2018
